FAERS Safety Report 26096052 (Version 1)
Quarter: 2025Q4

REPORT INFORMATION
  Report Type: Report from Study
  Country: CA (occurrence: CA)
  Receive Date: 20251127
  Receipt Date: 20251127
  Transmission Date: 20260118
  Serious: Yes (Hospitalization, Other)
  Sender: CSL BEHRING
  Company Number: CA-BEH-2025216576

PATIENT
  Age: 69 Year
  Sex: Female
  Weight: 62.5 kg

DRUGS (3)
  1. HAEMATE P [Suspect]
     Active Substance: ANTIHEMOPHILIC FACTOR HUMAN
     Indication: Von Willebrand^s disease
     Dosage: 2000 IU, QD, FOR 5 DAYS
     Route: 042
     Dates: start: 20241007
  2. HAEMATE P [Suspect]
     Active Substance: ANTIHEMOPHILIC FACTOR HUMAN
     Dosage: 2000 IU, QD FOR 3 DAYS
     Route: 042
     Dates: start: 20241007
  3. LOSARTAN [Concomitant]
     Active Substance: LOSARTAN
     Indication: Product used for unknown indication
     Dosage: 25 MG, QD
     Route: 065

REACTIONS (4)
  - Hospitalisation [Unknown]
  - Renal cancer [Unknown]
  - Renal mass [Unknown]
  - Unevaluable event [Unknown]
